FAERS Safety Report 19649646 (Version 1)
Quarter: 2021Q3

REPORT INFORMATION
  Report Type: Spontaneous
  Country: US (occurrence: US)
  Receive Date: 20210803
  Receipt Date: 20210803
  Transmission Date: 20211014
  Serious: Yes (Hospitalization, Other)
  Sender: FDA-Public Use
  Company Number: US-ACCORD-234076

PATIENT
  Age: 76 Year
  Sex: Female

DRUGS (1)
  1. AZACITIDINE. [Suspect]
     Active Substance: AZACITIDINE
     Indication: CHRONIC MYELOMONOCYTIC LEUKAEMIA

REACTIONS (3)
  - Weight decreased [Unknown]
  - Pulmonary tuberculosis [Recovered/Resolved]
  - Decreased appetite [Unknown]
